FAERS Safety Report 11187731 (Version 6)
Quarter: 2016Q1

REPORT INFORMATION
  Report Type: Spontaneous
  Country: US (occurrence: US)
  Receive Date: 20150615
  Receipt Date: 20160115
  Transmission Date: 20160525
  Serious: Yes (Hospitalization, Other)
  Sender: FDA-Public Use
  Company Number: US-AMGEN-USASP2015056290

PATIENT
  Age: 29 Year
  Sex: Female
  Weight: 84.35 kg

DRUGS (1)
  1. ENBREL [Suspect]
     Active Substance: ETANERCEPT
     Indication: JUVENILE IDIOPATHIC ARTHRITIS
     Dosage: 50 MG, QWK
     Route: 065
     Dates: start: 1997

REACTIONS (21)
  - Limb injury [Unknown]
  - Vulvovaginal pain [Unknown]
  - Fatigue [Unknown]
  - Arthralgia [Unknown]
  - Vulvovaginal discomfort [Unknown]
  - Vaginal discharge [Unknown]
  - Joint range of motion decreased [Unknown]
  - Sinusitis [Unknown]
  - Joint swelling [Unknown]
  - Peripheral swelling [Unknown]
  - Ecchymosis [Unknown]
  - Upper respiratory tract infection [Unknown]
  - Vulvovaginal mycotic infection [Unknown]
  - Pregnancy [Recovered/Resolved]
  - Fall [Unknown]
  - Genital tract inflammation [Unknown]
  - Headache [Unknown]
  - Oedema mucosal [Unknown]
  - Vulvovaginal pruritus [Unknown]
  - Ear pain [Unknown]
  - Hand fracture [Unknown]

NARRATIVE: CASE EVENT DATE: 2014
